FAERS Safety Report 8112698-5 (Version None)
Quarter: 2012Q1

REPORT INFORMATION
  Report Type: 
  Country: None (occurrence: None)
  Receive Date: 20120203
  Receipt Date: 20120201
  Transmission Date: 20120608
  Serious: No
  Sender: FDA-Public Use
  Company Number: US-PFIZER INC-2010129313

PATIENT
  Sex: Male
  Weight: 75 kg

DRUGS (5)
  1. CHANTIX [Suspect]
     Dosage: UNK
     Route: 048
     Dates: start: 20101001
  2. LYRICA [Suspect]
     Dosage: UNK
  3. GABAPENTIN [Suspect]
     Dosage: UNK
  4. METFORMIN HCL [Suspect]
     Dosage: UNK
  5. CHANTIX [Suspect]
     Dosage: 1 MG, UNK
     Dates: start: 20120101

REACTIONS (8)
  - ABNORMAL DREAMS [None]
  - OROPHARYNGEAL PAIN [None]
  - BALANCE DISORDER [None]
  - HYPERSOMNIA [None]
  - THINKING ABNORMAL [None]
  - FEELING ABNORMAL [None]
  - LETHARGY [None]
  - ABDOMINAL DISCOMFORT [None]
